FAERS Safety Report 12964255 (Version 1)
Quarter: 2016Q4

REPORT INFORMATION
  Report Type: Spontaneous
  Country: US (occurrence: US)
  Receive Date: 20161122
  Receipt Date: 20161122
  Transmission Date: 20170207
  Serious: No
  Sender: FDA-Public Use
  Company Number: US-TEVA-713745ACC

PATIENT
  Age: 55 Year
  Sex: Female

DRUGS (6)
  1. COPAXONE [Suspect]
     Active Substance: GLATIRAMER ACETATE
     Indication: MULTIPLE SCLEROSIS
     Route: 058
     Dates: start: 20150123
  2. CALCIUM [Concomitant]
     Active Substance: CALCIUM
  3. DEXILAT [Concomitant]
  4. ERY-TAB [Concomitant]
     Active Substance: ERYTHROMYCIN
  5. AMPYRA [Concomitant]
     Active Substance: DALFAMPRIDINE
  6. VITAMIN D [Concomitant]
     Active Substance: CHOLECALCIFEROL

REACTIONS (2)
  - Injection site reaction [Not Recovered/Not Resolved]
  - Fall [Not Recovered/Not Resolved]

NARRATIVE: CASE EVENT DATE: 201609
